FAERS Safety Report 8131381-3 (Version None)
Quarter: 2012Q1

REPORT INFORMATION
  Report Type: 
  Country: None (occurrence: None)
  Receive Date: 20120207
  Receipt Date: 20120205
  Transmission Date: 20120608
  Serious: Yes (Other)
  Sender: FDA-Public Use
  Company Number: 1000025131

PATIENT
  Age: 25 Year
  Sex: Male
  Weight: 91.6 kg

DRUGS (4)
  1. LORAZEPAM (LORAZEPAM) (1 MILLIGRAM) (LORAZEPAM) [Concomitant]
  2. SEROQUEL [Suspect]
     Indication: INSOMNIA
     Dosage: 1/2 TAB TO 1 TAB AT BEDTME (AS NEEDED), ORAL
     Route: 048
     Dates: start: 20111001, end: 20111021
  3. PRAZOSIN (PRAZOSIN) (PRAZOSIN) [Concomitant]
  4. VIIBRYD [Suspect]
     Indication: MAJOR DEPRESSION
     Dosage: 10 MG (10 MG, 1 IN 1 D), ORAL
     Route: 048
     Dates: start: 20110922, end: 20110928

REACTIONS (1)
  - PARKINSONISM [None]
